FAERS Safety Report 9849344 (Version 2)
Quarter: 2014Q1

REPORT INFORMATION
  Report Type: Spontaneous
  Country: GR (occurrence: GR)
  Receive Date: 20140128
  Receipt Date: 20140224
  Transmission Date: 20141002
  Serious: Yes (Hospitalization)
  Sender: FDA-Public Use
  Company Number: GR-NOVOPROD-398781

PATIENT
  Sex: Female
  Weight: 2.64 kg

DRUGS (2)
  1. PROTAPHANE PENFILL [Suspect]
     Indication: GESTATIONAL DIABETES
     Dosage: UNK
     Route: 064
     Dates: start: 20131025, end: 20131028
  2. PROTAPHANE PENFILL [Suspect]
     Indication: GESTATIONAL DIABETES
     Dosage: UNK
     Route: 064
     Dates: start: 20131025, end: 20131028

REACTIONS (3)
  - Umbilical cord haemorrhage [Unknown]
  - Thalassaemia [Unknown]
  - Foetal exposure during pregnancy [Unknown]
